FAERS Safety Report 12484094 (Version 1)
Quarter: 2016Q2

REPORT INFORMATION
  Report Type: Spontaneous
  Country: US (occurrence: None)
  Receive Date: 20160620
  Receipt Date: 20160620
  Transmission Date: 20160815
  Serious: Yes (Hospitalization)
  Sender: FDA-Public Use
  Company Number: None

PATIENT
  Age: 46 Year
  Sex: Male
  Weight: 94.35 kg

DRUGS (2)
  1. SULFAMETHOXAZOLE/TRIMETHOPRIM [Suspect]
     Active Substance: SULFAMETHOXAZOLE\TRIMETHOPRIM
     Indication: HIV INFECTION
     Dosage: 800/160 MG EVERY DAY PO
     Route: 048
     Dates: start: 20151130, end: 20160318
  2. SULFAMETHOXAZOLE/TRIMETHOPRIM [Suspect]
     Active Substance: SULFAMETHOXAZOLE\TRIMETHOPRIM
     Indication: ANTIFUNGAL PROPHYLAXIS
     Dosage: 800/160 MG EVERY DAY PO
     Route: 048
     Dates: start: 20151130, end: 20160318

REACTIONS (6)
  - Urticaria [None]
  - Pruritus [None]
  - Rash [None]
  - Nausea [None]
  - Acute kidney injury [None]
  - Vomiting [None]

NARRATIVE: CASE EVENT DATE: 20160316
